FAERS Safety Report 18181551 (Version 1)
Quarter: 2020Q3

REPORT INFORMATION
  Report Type: Spontaneous
  Country: ES (occurrence: ES)
  Receive Date: 20200821
  Receipt Date: 20200821
  Transmission Date: 20201103
  Serious: Yes (Life-Threatening, Hospitalization)
  Sender: FDA-Public Use
  Company Number: ES-CADILA HEALTHCARE LIMITED-ES-ZYDUS-028161

PATIENT

DRUGS (6)
  1. METFORMIN [Suspect]
     Active Substance: METFORMIN HYDROCHLORIDE
     Indication: TYPE 2 DIABETES MELLITUS
     Dosage: 850 MILLIGRAM,(INTERVAL :12 HOURS)
     Route: 048
     Dates: start: 20160829, end: 20180101
  2. FUROSEMIDE. [Concomitant]
     Active Substance: FUROSEMIDE
     Indication: RENOVASCULAR HYPERTENSION
     Dosage: 40 MILLIGRAM,(INTERVAL :1 DAYS)
     Route: 048
  3. CARVEDIOL [Concomitant]
     Active Substance: CARVEDILOL
     Indication: RENOVASCULAR HYPERTENSION
     Dosage: 25 MILLIGRAM,(INTERVAL :12 HOURS)
     Route: 048
  4. ALOPURINOL [Concomitant]
     Active Substance: ALLOPURINOL
     Indication: HYPERURICAEMIA
     Dosage: 300 MILLIGRAM,(INTERVAL :1 DAYS)
     Route: 048
  5. LOSARTAN. [Concomitant]
     Active Substance: LOSARTAN
     Indication: RENOVASCULAR HYPERTENSION
     Dosage: 100 MILLIGRAM,(INTERVAL :1 DAYS)
     Route: 048
  6. SIMVASTATIN. [Concomitant]
     Active Substance: SIMVASTATIN
     Indication: HYPERCHOLESTEROLAEMIA
     Dosage: 20 MILLIGRAM,(INTERVAL :1 DAYS)
     Route: 048

REACTIONS (2)
  - Lactic acidosis [Recovered/Resolved]
  - Acute kidney injury [Unknown]

NARRATIVE: CASE EVENT DATE: 20171231
